FAERS Safety Report 6260923-8 (Version None)
Quarter: 2009Q3

REPORT INFORMATION
  Report Type: 
  Country: None (occurrence: None)
  Receive Date: 20090709
  Receipt Date: 20070820
  Transmission Date: 20100115
  Serious: Yes (Hospitalization, Other)
  Sender: FDA-Public Use
  Company Number: US-ASTRAZENECA-2006UW27466

PATIENT
  Age: 572 Month
  Sex: Male
  Weight: 82.6 kg

DRUGS (19)
  1. SEROQUEL [Suspect]
     Indication: SCHIZOPHRENIA
     Route: 048
     Dates: start: 20051201, end: 20060601
  2. SEROQUEL [Suspect]
     Indication: PSYCHOTIC DISORDER
     Route: 048
     Dates: start: 20051201, end: 20060601
  3. SEROQUEL [Suspect]
     Dosage: 25-100 MG
     Route: 048
     Dates: start: 20060308
  4. SEROQUEL [Suspect]
     Dosage: 25-100 MG
     Route: 048
     Dates: start: 20060308
  5. HALDOL [Concomitant]
     Route: 065
     Dates: start: 20010101
  6. RISPERDAL [Concomitant]
     Route: 065
     Dates: start: 19990101
  7. NOVOLIN N [Concomitant]
     Dosage: 22 UNITS, 25 UNITS
     Route: 051
  8. ATENOLOL [Concomitant]
     Indication: BLOOD PRESSURE
     Dosage: 50-100 MG
     Route: 048
  9. LISINOPRIL [Concomitant]
     Indication: HYPERTENSION
     Dosage: 5-40 MG
     Route: 048
  10. VENLAFAXINE HYDROCHLORIDE [Concomitant]
     Indication: DEPRESSION
     Dosage: 75-300 MG
     Route: 048
     Dates: start: 20040301
  11. LOVASTATIN [Concomitant]
     Indication: HYPERLIPIDAEMIA
     Route: 048
  12. GABAPENTIN [Concomitant]
     Indication: NEURALGIA
     Route: 048
  13. GABAPENTIN [Concomitant]
     Indication: CONVULSION
     Route: 048
  14. GABAPENTIN [Concomitant]
     Indication: ABSTAINS FROM ALCOHOL
     Route: 048
  15. GABAPENTIN [Concomitant]
     Route: 065
  16. GABAPENTIN [Concomitant]
     Route: 065
  17. GABAPENTIN [Concomitant]
     Route: 065
  18. HYDROCHLOROTHIAZIDE [Concomitant]
     Indication: HYPERTENSION
     Dosage: 25MG, 50MG
     Route: 065
  19. ASCORBIC ACID [Concomitant]
     Route: 048

REACTIONS (8)
  - DIABETES MELLITUS [None]
  - DIABETES MELLITUS INADEQUATE CONTROL [None]
  - DIABETIC ULCER [None]
  - HYPOGLYCAEMIA [None]
  - INSULIN-REQUIRING TYPE 2 DIABETES MELLITUS [None]
  - KETOACIDOSIS [None]
  - PANCREATITIS [None]
  - WEIGHT INCREASED [None]
